FAERS Safety Report 6258507-0 (Version None)
Quarter: 2009Q3

REPORT INFORMATION
  Report Type: 
  Country: None (occurrence: None)
  Receive Date: 20090707
  Receipt Date: 20090626
  Transmission Date: 20100115
  Serious: Yes (Hospitalization)
  Sender: FDA-Public Use
  Company Number: DE-BIOGENIDEC-2009BI012402

PATIENT
  Age: 24 Year
  Sex: Female

DRUGS (2)
  1. TYSABRI [Suspect]
     Indication: RELAPSING-REMITTING MULTIPLE SCLEROSIS
     Route: 042
  2. CONTRACEPTIVE [Concomitant]
     Indication: CONTRACEPTION

REACTIONS (4)
  - HAEMOTHORAX [None]
  - PLEURITIC PAIN [None]
  - PNEUMONIA [None]
  - PULMONARY EMBOLISM [None]
